FAERS Safety Report 21421177 (Version 4)
Quarter: 2022Q4

REPORT INFORMATION
  Report Type: Report from Study
  Country: CA (occurrence: CA)
  Receive Date: 20221007
  Receipt Date: 20221212
  Transmission Date: 20230112
  Serious: Yes (Death, Hospitalization, Other)
  Sender: FDA-Public Use
  Company Number: CA-GLAXOSMITHKLINE-CA2022034554

PATIENT

DRUGS (9)
  1. MEPOLIZUMAB [Suspect]
     Active Substance: MEPOLIZUMAB
     Indication: Asthma
     Dosage: 100 MG, Z EVERY 4 WEEKS
     Route: 058
     Dates: start: 20200827
  2. MEPOLIZUMAB [Suspect]
     Active Substance: MEPOLIZUMAB
     Indication: Asthma
     Dosage: 100 MG, Z EVERY 4 WEEKS
     Route: 058
     Dates: start: 20200827
  3. MEPOLIZUMAB [Suspect]
     Active Substance: MEPOLIZUMAB
     Indication: Asthma
     Dosage: 100 MG, Z EVERY 4 WEEKS
     Route: 058
     Dates: start: 20200827
  4. FLULAVAL QUADRIVALENT 2022/2023 [Suspect]
     Active Substance: INFLUENZA A VIRUS A/DARWIN/9/2021 IVR-228 (H3N2) ANTIGEN (UV, FORMALDEHYDE INACTIVATED)\INFLUENZA A
     Indication: Prophylaxis
  5. COVID-19 VACCINE NOS [Suspect]
     Active Substance: COVID-19 VACCINE NOS
     Indication: COVID-19 prophylaxis
     Dosage: UNK
  6. CEPHALEXIN [Concomitant]
     Active Substance: CEPHALEXIN
     Indication: Product used for unknown indication
     Dosage: 500 MG
     Dates: start: 20221120
  7. AZITHROMYCIN [Concomitant]
     Active Substance: AZITHROMYCIN
     Indication: Product used for unknown indication
     Dosage: 250 MG 3X/WEEK
  8. PREDNISONE [Concomitant]
     Active Substance: PREDNISONE
     Indication: Product used for unknown indication
     Dosage: 50 MG
  9. PREDNISONE [Concomitant]
     Active Substance: PREDNISONE
     Dosage: 50 MG
     Dates: start: 20220927

REACTIONS (14)
  - Death [Fatal]
  - Hospitalisation [Not Recovered/Not Resolved]
  - Pneumonia [Unknown]
  - Dyspnoea exertional [Recovering/Resolving]
  - Oxygen saturation decreased [Recovering/Resolving]
  - Chest pain [Recovered/Resolved]
  - Injection site pain [Unknown]
  - Diarrhoea [Unknown]
  - Wound [Unknown]
  - Blood pressure increased [Unknown]
  - Eye irritation [Unknown]
  - Oropharyngeal pain [Unknown]
  - Heart rate increased [Unknown]
  - Inappropriate schedule of product administration [Unknown]

NARRATIVE: CASE EVENT DATE: 20220323
